FAERS Safety Report 8087220 (Version 3)
Quarter: 2024Q4

REPORT INFORMATION
  Report Type: Spontaneous
  Country: IT (occurrence: IT)
  Receive Date: 20110812
  Receipt Date: 20241211
  Transmission Date: 20250115
  Serious: Yes (Death, Hospitalization, Other)
  Sender: BRISTOL-MYERS SQUIBB COMPANY
  Company Number: IT-BRISTOL-MYERS SQUIBB COMPANY-15949712

PATIENT
  Age: 63 Year

DRUGS (2)
  1. ENTECAVIR [Suspect]
     Active Substance: ENTECAVIR
     Indication: Hepatitis B
     Dosage: UNK
  2. ENTECAVIR [Suspect]
     Active Substance: ENTECAVIR
     Indication: Hepatocellular carcinoma

REACTIONS (6)
  - Lactic acidosis [Fatal]
  - Septic shock [Fatal]
  - Aspergillus infection [Unknown]
  - Pneumonia [Unknown]
  - Ascites [Unknown]
  - Jaundice [Unknown]
